FAERS Safety Report 13572052 (Version 1)
Quarter: 2017Q2

REPORT INFORMATION
  Report Type: Spontaneous
  Country: US (occurrence: US)
  Receive Date: 20170523
  Receipt Date: 20170523
  Transmission Date: 20170830
  Serious: No
  Sender: FDA-Public Use
  Company Number: US-ACCORD-042063

PATIENT
  Age: 43 Year
  Sex: Female
  Weight: 45.36 kg

DRUGS (1)
  1. QUETIAPINE ACCORD [Suspect]
     Active Substance: QUETIAPINE
     Indication: AFFECTIVE DISORDER
     Dosage: 1/2 TABLET AT BEDTIME
     Route: 048
     Dates: start: 20160621

REACTIONS (3)
  - Product substitution issue [Unknown]
  - Gait disturbance [Unknown]
  - Malaise [Unknown]
